FAERS Safety Report 5915496-3 (Version None)
Quarter: 2008Q4

REPORT INFORMATION
  Report Type: 
  Country: None (occurrence: None)
  Receive Date: 20081010
  Receipt Date: 20081001
  Transmission Date: 20090506
  Serious: Yes (Hospitalization, Other)
  Sender: FDA-Public Use
  Company Number: DE-ELI_LILLY_AND_COMPANY-DE200806004570

PATIENT
  Sex: Female
  Weight: 70 kg

DRUGS (6)
  1. CYMBALTA [Suspect]
     Indication: DEPRESSION
     Dosage: 30 MG, DAILY (1/D)
     Route: 048
     Dates: start: 20080314, end: 20080318
  2. BISOPROLOL [Concomitant]
     Indication: HYPERTENSION
     Dosage: 5 MG, DAILY (1/D)
     Route: 048
  3. DIOVAN [Concomitant]
     Indication: HYPERTENSION
     Dosage: 160 MG, DAILY (1/D)
     Route: 048
  4. DIOVAN [Concomitant]
     Dosage: 80 MG, EACH MORNING
     Route: 065
     Dates: start: 20080101
  5. HYDROCHLOROTHIAZIDE [Concomitant]
     Indication: OEDEMA
     Dosage: 25 MG, DAILY (1/D)
     Route: 048
     Dates: end: 20080318
  6. HYDROCHLOROTHIAZIDE [Concomitant]
     Dosage: 6.25 (UNKNOWN UNITS), EACH MORNING
     Route: 065
     Dates: start: 20080101

REACTIONS (10)
  - AREFLEXIA [None]
  - DYSARTHRIA [None]
  - DYSPNOEA [None]
  - ELECTROCARDIOGRAM T WAVE ABNORMAL [None]
  - EXTENSOR PLANTAR RESPONSE [None]
  - HYPONATRAEMIA [None]
  - REFLEX TEST ABNORMAL [None]
  - RESTLESSNESS [None]
  - TREMOR [None]
  - URINARY TRACT INFECTION [None]
